FAERS Safety Report 8463828-7 (Version None)
Quarter: 2012Q2

REPORT INFORMATION
  Report Type: 
  Country: None (occurrence: None)
  Receive Date: 20120625
  Receipt Date: 20120612
  Transmission Date: 20120825
  Serious: Yes (Death, Life-Threatening, Hospitalization, Disabling, Other)
  Sender: FDA-Public Use
  Company Number: US-MYLANLABS-2009AC000357

PATIENT
  Age: 66 Year
  Sex: Male
  Weight: 73.03 kg

DRUGS (97)
  1. ALDACTONE [Concomitant]
  2. CLONAZEPAM [Concomitant]
  3. BUMEX [Concomitant]
  4. DIOVAN [Concomitant]
  5. ENALAPRIL MALEATE [Concomitant]
  6. KAY CIEL DURA-TABS [Concomitant]
  7. LIBRIUM [Concomitant]
  8. MAGNESIUM OXIDE [Concomitant]
  9. MIRTAZAPINE [Concomitant]
  10. NEURONTIN [Concomitant]
  11. CALCIUM CARBONATE [Concomitant]
  12. OXYCODONE HCL [Concomitant]
  13. REGLAN [Concomitant]
  14. TAGAMET [Concomitant]
  15. TESSALON [Concomitant]
  16. VIOXX [Concomitant]
  17. ZITHROMAX [Concomitant]
  18. ALLEGRA [Concomitant]
  19. MUCINEX [Concomitant]
  20. ASPIRIN [Concomitant]
  21. ATIVAN [Concomitant]
  22. DECADRON [Concomitant]
  23. HYDROCHLOROTHIAZIDE [Concomitant]
  24. LIDOCAINE [Concomitant]
  25. NICOTINE [Concomitant]
  26. NITROGLYCERIN [Concomitant]
  27. TYROSINE [Concomitant]
  28. VALERIAN [Concomitant]
  29. XANAX [Concomitant]
  30. AMARYL [Concomitant]
  31. REMERON [Concomitant]
  32. COMBIVENT [Concomitant]
  33. LORTAB [Concomitant]
  34. PHENERGAN [Concomitant]
  35. CHANTIX [Concomitant]
  36. COREG [Concomitant]
  37. FLOMAX [Concomitant]
  38. INSPRA /01362602/ [Concomitant]
  39. LORCET-HD [Concomitant]
  40. MAGNESIUM [Concomitant]
  41. PULMICORT [Concomitant]
  42. DIGOXIN [Suspect]
     Indication: CARDIOMYOPATHY
     Route: 048
     Dates: start: 19990601, end: 20080206
  43. PREDNISONE TAB [Concomitant]
  44. KLONOPIN [Concomitant]
  45. POTASSIUM ACETATE [Concomitant]
  46. TIKOSYN [Concomitant]
  47. IRON [Concomitant]
  48. DEMEROL [Concomitant]
  49. CECLOR [Concomitant]
  50. FORADIL [Concomitant]
  51. SINGULAIR [Concomitant]
  52. SPIRIVA [Concomitant]
  53. TORADOL [Concomitant]
  54. HYDROCODONE [Concomitant]
  55. BENADRYL [Concomitant]
  56. AVELOX [Concomitant]
  57. DARVOCET [Concomitant]
  58. IRON [Concomitant]
  59. LISINOPRIL [Concomitant]
  60. POTASSIUM CHLORIDE [Concomitant]
  61. ACETAMINOPHEN [Concomitant]
  62. VISTARIL [Concomitant]
  63. ALTACE [Concomitant]
  64. FOLIC ACID [Concomitant]
  65. ATROVENT [Concomitant]
  66. CEFTIN [Concomitant]
  67. CELESTONE /00008501/ [Concomitant]
  68. EFUDEX [Concomitant]
  69. ERYTHROMYCIN [Concomitant]
  70. HALDOL [Concomitant]
  71. MARCAINE HCL [Concomitant]
  72. SINEMET [Concomitant]
  73. TRIAMTERENE [Concomitant]
  74. ZAROXOLYN [Concomitant]
  75. MAGNESIUM [Concomitant]
  76. BACTRIM DS [Concomitant]
  77. DEMADEX [Concomitant]
  78. ELOCON [Concomitant]
  79. LACTULOSE [Concomitant]
  80. MAVIK [Concomitant]
  81. XOPENEX [Concomitant]
  82. AMOXIL [Concomitant]
  83. COUMADIN [Concomitant]
  84. IMDUR [Concomitant]
  85. TORSEMIDE [Concomitant]
  86. DIURIL /00011801/ [Concomitant]
  87. DUONEB [Concomitant]
  88. ISOSORBIDE [Concomitant]
  89. PULMICORT [Concomitant]
  90. SOMA [Concomitant]
  91. PERCOCET [Concomitant]
  92. CAPTOPRIL [Concomitant]
  93. KENALOG [Concomitant]
  94. LEVAQUIN [Concomitant]
  95. MACRODANTIN [Concomitant]
  96. MEDROL [Concomitant]
  97. NUBAIN [Concomitant]

REACTIONS (138)
  - PAIN [None]
  - EMOTIONAL DISTRESS [None]
  - ANHEDONIA [None]
  - CARDIAC FAILURE CONGESTIVE [None]
  - MITRAL VALVE INCOMPETENCE [None]
  - FUNCTIONAL GASTROINTESTINAL DISORDER [None]
  - ISCHAEMIC CARDIOMYOPATHY [None]
  - RESPIRATORY FAILURE [None]
  - INJURY [None]
  - HYPOXIA [None]
  - ATRIAL FLUTTER [None]
  - HAEMOPTYSIS [None]
  - JAUNDICE [None]
  - CONSTIPATION [None]
  - HYPOTENSION [None]
  - PARAESTHESIA [None]
  - FALL [None]
  - EYE PRURITUS [None]
  - ACTINIC KERATOSIS [None]
  - HYPERCHOLESTEROLAEMIA [None]
  - ARTHRALGIA [None]
  - JUGULAR VEIN DISTENSION [None]
  - DIZZINESS [None]
  - POLYCYTHAEMIA VERA [None]
  - FLUID OVERLOAD [None]
  - SYNCOPE [None]
  - PANCREATITIS [None]
  - COUGH [None]
  - AZOTAEMIA [None]
  - APNOEA [None]
  - FACE OEDEMA [None]
  - BURNING SENSATION [None]
  - RASH [None]
  - X-RAY ABNORMAL [None]
  - RHONCHI [None]
  - ASTHENIA [None]
  - ILL-DEFINED DISORDER [None]
  - LOSS OF EMPLOYMENT [None]
  - RENAL FAILURE [None]
  - VENTRICULAR DYSFUNCTION [None]
  - CARDIAC FAILURE ACUTE [None]
  - TOBACCO ABUSE [None]
  - TERMINAL STATE [None]
  - PULMONARY OEDEMA [None]
  - TOXICITY TO VARIOUS AGENTS [None]
  - BRONCHITIS [None]
  - HYPOKALAEMIA [None]
  - DYSURIA [None]
  - BLEPHARITIS [None]
  - OBESITY [None]
  - OEDEMA PERIPHERAL [None]
  - DYSPNOEA [None]
  - POOR QUALITY DRUG ADMINISTERED [None]
  - HEPATITIS C [None]
  - BASAL CELL CARCINOMA [None]
  - VENTRICULAR HYPERTROPHY [None]
  - BACK PAIN [None]
  - GAIT DISTURBANCE [None]
  - LUMBAR RADICULOPATHY [None]
  - RENAL VESSEL DISORDER [None]
  - PALPITATIONS [None]
  - LUNG INFECTION [None]
  - MYALGIA [None]
  - ELECTROLYTE IMBALANCE [None]
  - CHOLELITHIASIS [None]
  - DEAFNESS [None]
  - COMPUTERISED TOMOGRAM ABNORMAL [None]
  - SPLENOMEGALY [None]
  - FATIGUE [None]
  - ANAEMIA [None]
  - COR PULMONALE [None]
  - DIASTOLIC DYSFUNCTION [None]
  - PULMONARY HYPERTENSION [None]
  - DISEASE PROGRESSION [None]
  - ALCOHOL ABUSE [None]
  - CARDIAC VALVE DISEASE [None]
  - VENTRICULAR HYPOKINESIA [None]
  - CYANOSIS [None]
  - MYELOPROLIFERATIVE DISORDER [None]
  - OSTEOARTHRITIS [None]
  - ECHOCARDIOGRAM ABNORMAL [None]
  - RADICULOPATHY [None]
  - PERIODONTAL DISEASE [None]
  - ECONOMIC PROBLEM [None]
  - DEATH [None]
  - ATRIAL FIBRILLATION [None]
  - PULMONARY FIBROSIS [None]
  - BUNDLE BRANCH BLOCK [None]
  - SPINAL OSTEOARTHRITIS [None]
  - GYNAECOMASTIA [None]
  - ATRIAL TACHYCARDIA [None]
  - WHEEZING [None]
  - ROTATOR CUFF SYNDROME [None]
  - INTERVERTEBRAL DISC DEGENERATION [None]
  - SCIATICA [None]
  - PLEURISY [None]
  - TINNITUS [None]
  - DECREASED APPETITE [None]
  - BLOOD PRESSURE DECREASED [None]
  - UPPER-AIRWAY COUGH SYNDROME [None]
  - DRUG DEPENDENCE [None]
  - SPINAL COLUMN STENOSIS [None]
  - HEPATIC CIRRHOSIS [None]
  - ATELECTASIS [None]
  - CORONARY ARTERY STENOSIS [None]
  - HYPOAESTHESIA [None]
  - EMPHYSEMA [None]
  - PRODUCTIVE COUGH [None]
  - CHEST PAIN [None]
  - TREATMENT NONCOMPLIANCE [None]
  - HYPONATRAEMIA [None]
  - BLADDER OUTLET OBSTRUCTION [None]
  - OSTEOPENIA [None]
  - EYE DISORDER [None]
  - CHRONIC OBSTRUCTIVE PULMONARY DISEASE [None]
  - ORTHOPNOEA [None]
  - MUSCULOSKELETAL PAIN [None]
  - GASTROINTESTINAL HAEMORRHAGE [None]
  - SQUAMOUS CELL CARCINOMA [None]
  - LOSS OF CONSCIOUSNESS [None]
  - DIABETES MELLITUS [None]
  - PLEURAL EFFUSION [None]
  - ENCEPHALOPATHY [None]
  - WITHDRAWAL SYNDROME [None]
  - MYOCARDIAL INFARCTION [None]
  - VENTRICULAR EXTRASYSTOLES [None]
  - SUPRAVENTRICULAR EXTRASYSTOLES [None]
  - PAIN IN EXTREMITY [None]
  - EPISTAXIS [None]
  - PYREXIA [None]
  - OXYGEN SATURATION DECREASED [None]
  - FOLATE DEFICIENCY [None]
  - THROMBOCYTOPENIA [None]
  - HEADACHE [None]
  - ULTRASOUND SCAN ABNORMAL [None]
  - LABORATORY TEST ABNORMAL [None]
  - HEPATOMEGALY [None]
  - BREATH SOUNDS ABNORMAL [None]
